FAERS Safety Report 10090025 (Version 1)
Quarter: 2014Q2

REPORT INFORMATION
  Report Type: Spontaneous
  Country: FR (occurrence: FR)
  Receive Date: 20140421
  Receipt Date: 20140421
  Transmission Date: 20141212
  Serious: Yes (Hospitalization)
  Sender: FDA-Public Use
  Company Number: FR-ROCHE-1386689

PATIENT
  Age: 75 Year
  Sex: Male

DRUGS (1)
  1. ROACTEMRA [Suspect]
     Indication: ERDHEIM-CHESTER DISEASE
     Route: 065
     Dates: start: 20130128, end: 20140125

REACTIONS (1)
  - Organising pneumonia [Not Recovered/Not Resolved]
